FAERS Safety Report 9433465 (Version 3)
Quarter: 2013Q4

REPORT INFORMATION
  Report Type: Spontaneous
  Country: US (occurrence: US)
  Receive Date: 20130731
  Receipt Date: 20131115
  Transmission Date: 20140711
  Serious: Yes (Other)
  Sender: FDA-Public Use
  Company Number: US-ROXANE LABORATORIES, INC.-2013-RO-01211RO

PATIENT
  Age: 21 Year
  Sex: Female

DRUGS (3)
  1. MYCOPHENOLATE MOFETIL [Suspect]
     Indication: RENAL TRANSPLANT
     Dosage: 750 MG
     Route: 048
     Dates: start: 20071101
  2. AMLODIPINE [Suspect]
     Indication: HYPERTENSION
     Dosage: 10 MG
     Route: 048
     Dates: start: 200304, end: 20130628
  3. PROGRAF [Suspect]

REACTIONS (1)
  - Abortion spontaneous [Unknown]
